FAERS Safety Report 4482060-5 (Version None)
Quarter: 2004Q4

REPORT INFORMATION
  Report Type: 
  Country: None (occurrence: None)
  Receive Date: 20041020
  Receipt Date: 20041005
  Transmission Date: 20050328
  Serious: Yes (Hospitalization)
  Sender: FDA-Public Use
  Company Number: JP_041004732

PATIENT
  Age: 63 Year
  Sex: Male
  Weight: 50 kg

DRUGS (10)
  1. GEMZAR [Suspect]
     Indication: PANCREATIC CARCINOMA
     Dosage: 1500 MG OTHER
     Route: 042
     Dates: start: 20040904, end: 20040911
  2. OXYCONTIN [Concomitant]
  3. MAGNESIUM OXIDE [Concomitant]
  4. PURSENNID [Concomitant]
  5. ALLELOCK     (OLOPATADINE HYDROCHLORIDE) [Concomitant]
  6. ZYRTEC [Concomitant]
  7. LOXONIN (LOXOPROFEN SODIUM) [Concomitant]
  8. OMEPRAL (OMEPRAZOLE RATIOPHARM) [Concomitant]
  9. NAUZELIN (DOMPERIDONE) [Concomitant]
  10. KYTRIL [Concomitant]

REACTIONS (3)
  - DRUG ERUPTION [None]
  - LYMPHOCYTE STIMULATION TEST POSITIVE [None]
  - PYREXIA [None]
